FAERS Safety Report 23826285 (Version 7)
Quarter: 2025Q2

REPORT INFORMATION
  Report Type: Report from Study
  Country: JP (occurrence: JP)
  Receive Date: 20240507
  Receipt Date: 20250602
  Transmission Date: 20250716
  Serious: Yes (Hospitalization, Other)
  Sender: EISAI
  Company Number: JP-Eisai-202310434_LEN-EC_P_1

PATIENT
  Age: 54 Year
  Sex: Female
  Weight: 60 kg

DRUGS (11)
  1. LENVIMA [Suspect]
     Active Substance: LENVATINIB
     Indication: Endometrial cancer
     Dates: start: 20230706, end: 20230816
  2. LENVIMA [Suspect]
     Active Substance: LENVATINIB
     Dates: start: 20230817, end: 20231011
  3. LENVIMA [Suspect]
     Active Substance: LENVATINIB
     Dates: start: 20231019, end: 202312
  4. KEYTRUDA [Suspect]
     Active Substance: PEMBROLIZUMAB
     Indication: Endometrial cancer
     Dates: start: 20230706, end: 202308
  5. KEYTRUDA [Suspect]
     Active Substance: PEMBROLIZUMAB
     Dates: start: 20230828, end: 20231213
  6. LOXOPROFEN SODIUM [Concomitant]
     Active Substance: LOXOPROFEN SODIUM
     Indication: Arthralgia
     Dates: start: 20230719
  7. ACETAMINOPHEN [Concomitant]
     Active Substance: ACETAMINOPHEN
     Dates: start: 20230719
  8. HACHIAZULE [Concomitant]
     Indication: Stomatitis
  9. DOMPERIDONE [Concomitant]
     Active Substance: DOMPERIDONE
     Indication: Nausea
  10. METOCLOPRAMIDE [Concomitant]
     Active Substance: METOCLOPRAMIDE
     Indication: Nausea
  11. OXETHAZAINE [Concomitant]
     Active Substance: OXETHAZAINE

REACTIONS (2)
  - Epistaxis [Recovering/Resolving]
  - Diarrhoea [Recovering/Resolving]

NARRATIVE: CASE EVENT DATE: 20230802
